FAERS Safety Report 5154341-3 (Version None)
Quarter: 2006Q4

REPORT INFORMATION
  Report Type: 
  Country: None (occurrence: None)
  Receive Date: 20061114
  Receipt Date: 20061030
  Transmission Date: 20070319
  Serious: Yes (Hospitalization, Other)
  Sender: FDA-Public Use
  Company Number: 2006136504

PATIENT
  Sex: Female

DRUGS (1)
  1. EPAMIN (PHENYTOIN SODIUM) [Suspect]

REACTIONS (3)
  - DRUG DISPENSING ERROR [None]
  - DRUG EXPOSURE DURING PREGNANCY [None]
  - PAIN [None]
